FAERS Safety Report 9311169 (Version 4)
Quarter: 2013Q2

REPORT INFORMATION
  Report Type: Spontaneous
  Country: US (occurrence: US)
  Receive Date: 20130528
  Receipt Date: 20130626
  Transmission Date: 20140414
  Serious: No
  Sender: FDA-Public Use
  Company Number: US-PFIZER INC-2013161229

PATIENT
  Sex: Female

DRUGS (4)
  1. LEVOXYL [Suspect]
     Indication: HYPOTHYROIDISM
     Dosage: 50 UG, UNK
  2. LEVOXYL [Suspect]
     Dosage: 50 UG, UNK
  3. LEVOXYL [Suspect]
     Dosage: 50 UG, UNK
  4. LEVOXYL [Suspect]
     Dosage: 50 UG, UNK

REACTIONS (8)
  - Product quality issue [Unknown]
  - Swelling face [Unknown]
  - Palpitations [Unknown]
  - Menorrhagia [Unknown]
  - Anaemia [Unknown]
  - Fatigue [Unknown]
  - Dysphonia [Unknown]
  - Malaise [Unknown]
